FAERS Safety Report 5886066-0 (Version None)
Quarter: 2008Q3

REPORT INFORMATION
  Report Type: 
  Country: None (occurrence: None)
  Receive Date: 20080917
  Receipt Date: 20080905
  Transmission Date: 20090109
  Serious: Yes (Hospitalization)
  Sender: FDA-Public Use
  Company Number: US-ROCHE-585181

PATIENT
  Sex: Male

DRUGS (13)
  1. MYCOPHENOLATE MOFETIL [Suspect]
     Indication: DRUG USE FOR UNKNOWN INDICATION
     Route: 065
     Dates: start: 20000509
  2. ERL080A [Suspect]
     Indication: RENAL TRANSPLANT
     Route: 048
     Dates: start: 20000509
  3. MAGNESIUM GLUCONATE [Concomitant]
  4. VICODIN [Concomitant]
  5. LASIX [Concomitant]
  6. HYDRALAZINE HCL [Concomitant]
  7. LOPRESSOR [Concomitant]
  8. POTASSIUM CHLORIDE [Concomitant]
  9. ALLOPURINOL [Concomitant]
  10. PREDNISONE TAB [Concomitant]
  11. NEORAL [Concomitant]
  12. COLCHICINE [Concomitant]
  13. COLACE [Concomitant]

REACTIONS (3)
  - ABDOMINAL PAIN UPPER [None]
  - GASTROOESOPHAGEAL REFLUX DISEASE [None]
  - MUSCULOSKELETAL PAIN [None]
